FAERS Safety Report 11528194 (Version 2)
Quarter: 2015Q4

REPORT INFORMATION
  Report Type: Spontaneous
  Country: US (occurrence: US)
  Receive Date: 20150921
  Receipt Date: 20151002
  Transmission Date: 20160304
  Serious: Yes (Other)
  Sender: FDA-Public Use
  Company Number: US-ROCHE-1635279

PATIENT
  Age: 68 Year
  Sex: Male

DRUGS (1)
  1. ESBRIET [Suspect]
     Active Substance: PIRFENIDONE
     Indication: INTERSTITIAL LUNG DISEASE
     Dosage: 3 CAPS
     Route: 048
     Dates: start: 20150407

REACTIONS (2)
  - Gastrointestinal disorder [Unknown]
  - Renal cyst [Unknown]

NARRATIVE: CASE EVENT DATE: 201509
